FAERS Safety Report 18835002 (Version 2)
Quarter: 2021Q1

REPORT INFORMATION
  Report Type: Spontaneous
  Country: CH (occurrence: CH)
  Receive Date: 20210203
  Receipt Date: 20210309
  Transmission Date: 20210419
  Serious: Yes (Hospitalization, Other)
  Sender: FDA-Public Use
  Company Number: NVSC2021CH016542

PATIENT
  Sex: Male

DRUGS (2)
  1. BEOVU [Suspect]
     Active Substance: BROLUCIZUMAB-DBLL
     Indication: PRODUCT USED FOR UNKNOWN INDICATION
     Dosage: 6 MG
     Route: 065
     Dates: end: 20201019
  2. CANDESARTAN PLUS [Concomitant]
     Active Substance: CANDESARTAN CILEXETIL\HYDROCHLOROTHIAZIDE
     Indication: PRODUCT USED FOR UNKNOWN INDICATION
     Dosage: UNK
     Route: 065

REACTIONS (8)
  - Amaurosis fugax [Unknown]
  - Dyspnoea [Unknown]
  - COVID-19 pneumonia [Unknown]
  - Delirium [Unknown]
  - Cerebrovascular accident [Recovering/Resolving]
  - Pyrexia [Unknown]
  - Respiratory failure [Unknown]
  - Cough [Unknown]

NARRATIVE: CASE EVENT DATE: 20201019
